FAERS Safety Report 5869311-7 (Version None)
Quarter: 2008Q3

REPORT INFORMATION
  Report Type: 
  Country: None (occurrence: None)
  Receive Date: 20080828
  Receipt Date: 20080811
  Transmission Date: 20090109
  Serious: Yes (Hospitalization)
  Sender: FDA-Public Use
  Company Number: B0533701A

PATIENT
  Age: 80 Year
  Sex: Female

DRUGS (10)
  1. PROPAFENONE HYDROCHLORIDE [Suspect]
     Indication: ATRIAL FIBRILLATION
     Dates: start: 19960101
  2. CITALOPRAM (FORMUALTION UNKNOWN) (CITALOPRAM) [Suspect]
     Indication: ANXIETY
  3. DIGOXIN [Concomitant]
  4. ISOSORBIDE DINITRATE [Concomitant]
  5. SPIRONOLACTONE AND HYDROCHLOROTHIAZIDE [Concomitant]
  6. SIMVASTATIN [Concomitant]
  7. ASPIRIN [Concomitant]
  8. NITROGLYCERIN [Concomitant]
  9. WARFARIN SODIUM [Concomitant]
  10. AMLODIPINE [Concomitant]

REACTIONS (9)
  - ATRIAL FIBRILLATION [None]
  - CHEST DISCOMFORT [None]
  - CONTUSION [None]
  - DELIRIUM [None]
  - DISTURBANCE IN ATTENTION [None]
  - DIZZINESS [None]
  - DRUG INTERACTION [None]
  - FALL [None]
  - METABOLIC DISORDER [None]
